FAERS Safety Report 19660377 (Version 3)
Quarter: 2021Q3

REPORT INFORMATION
  Report Type: Spontaneous
  Country: JP (occurrence: JP)
  Receive Date: 20210805
  Receipt Date: 20210902
  Transmission Date: 20211014
  Serious: Yes (Life-Threatening, Other)
  Sender: FDA-Public Use
  Company Number: JP-PFIZER INC-202100952620

PATIENT
  Age: 53 Year
  Sex: Female

DRUGS (8)
  1. PHENYTOIN. [Interacting]
     Active Substance: PHENYTOIN
     Dosage: 200 MG, DAILY
  2. FOSPHENYTOIN SODIUM. [Suspect]
     Active Substance: FOSPHENYTOIN SODIUM
     Indication: EPILEPSY
     Dosage: 18 MG/KG BY DRIP INFUSION
  3. SERTRALINE HCL [Interacting]
     Active Substance: SERTRALINE HYDROCHLORIDE
     Indication: DEPRESSION
     Dosage: UNK
  4. LEVETIRACETAM. [Interacting]
     Active Substance: LEVETIRACETAM
     Dosage: 2000 MG, DAILY
     Dates: start: 201807
  5. ZONISAMIDE. [Interacting]
     Active Substance: ZONISAMIDE
     Dosage: 300 MG, DAILY
  6. LEVETIRACETAM. [Interacting]
     Active Substance: LEVETIRACETAM
     Dosage: UNK
  7. SULPIRIDE [Interacting]
     Active Substance: SULPIRIDE
     Indication: DEPRESSION
     Dosage: UNK
  8. PHENYTOIN. [Interacting]
     Active Substance: PHENYTOIN
     Dosage: 100 MG, DAILY

REACTIONS (11)
  - Renal failure [Unknown]
  - Infection [Unknown]
  - Electrocardiogram ST segment elevation [Recovered/Resolved]
  - Drug interaction [Recovered/Resolved]
  - Hepatic failure [Unknown]
  - Arrhythmia [Recovered/Resolved]
  - Electrocardiogram QT prolonged [Recovered/Resolved]
  - Cardio-respiratory arrest [Recovered/Resolved]
  - Electrocardiogram abnormal [Recovered/Resolved]
  - Multiple organ dysfunction syndrome [Unknown]
  - Ventricular tachycardia [Recovered/Resolved]
